FAERS Safety Report 4556847-4 (Version None)
Quarter: 2005Q1

REPORT INFORMATION
  Report Type: 
  Country: None (occurrence: None)
  Receive Date: 20050120
  Receipt Date: 20031009
  Transmission Date: 20050727
  Serious: Yes (Hospitalization, Disabling, Other)
  Sender: FDA-Public Use
  Company Number: US-MERCK-0310USA01297

PATIENT
  Age: 54 Year
  Sex: Female
  Weight: 108 kg

DRUGS (18)
  1. VIOXX [Suspect]
     Indication: ARTHRITIS
     Route: 048
     Dates: start: 20010530, end: 20020301
  2. VIOXX [Suspect]
     Route: 048
     Dates: start: 20001101, end: 20010101
  3. VIOXX [Suspect]
     Indication: ARTHRALGIA
     Route: 048
     Dates: start: 20010530, end: 20020301
  4. VIOXX [Suspect]
     Route: 048
     Dates: start: 20001101, end: 20010101
  5. ALTACE [Concomitant]
     Indication: HYPERTENSION
     Route: 065
     Dates: start: 20000101, end: 20020601
  6. LIPITOR [Concomitant]
     Indication: BLOOD CHOLESTEROL INCREASED
     Route: 065
     Dates: start: 19990310, end: 20020301
  7. ANALGESIC OR ANESTHETIC (UNSPECIFIED) [Concomitant]
     Indication: PAIN
     Route: 065
  8. PREMARIN [Concomitant]
     Indication: HORMONE REPLACEMENT THERAPY
     Route: 065
     Dates: start: 19970101, end: 20020701
  9. ZOLOFT [Concomitant]
     Indication: DEPRESSION
     Route: 065
     Dates: start: 19991027
  10. HYDRODIURIL [Concomitant]
     Route: 048
  11. ATENOLOL [Concomitant]
     Route: 065
  12. AMITRIPTYLINE HYDROCHLORIDE [Concomitant]
     Indication: INSOMNIA
     Route: 065
     Dates: start: 20010531, end: 20011030
  13. AMITRIPTYLINE HYDROCHLORIDE [Concomitant]
     Route: 065
     Dates: start: 20011031
  14. AMITRIPTYLINE HYDROCHLORIDE [Concomitant]
     Route: 065
     Dates: start: 20010514, end: 20010530
  15. AMITRIPTYLINE HYDROCHLORIDE [Concomitant]
     Indication: PAIN
     Route: 065
     Dates: start: 20010531, end: 20011030
  16. AMITRIPTYLINE HYDROCHLORIDE [Concomitant]
     Route: 065
     Dates: start: 20011031
  17. AMITRIPTYLINE HYDROCHLORIDE [Concomitant]
     Route: 065
     Dates: start: 20010514, end: 20010530
  18. CELEBREX [Concomitant]
     Route: 065
     Dates: end: 20010530

REACTIONS (23)
  - ANXIETY [None]
  - ARTHRALGIA [None]
  - ASTHENIA [None]
  - BURSITIS [None]
  - CARDIAC DISORDER [None]
  - CARPAL TUNNEL SYNDROME [None]
  - DEPRESSION [None]
  - DIZZINESS [None]
  - EMPHYSEMA [None]
  - FIBROMYALGIA [None]
  - HEADACHE [None]
  - HYPERHIDROSIS [None]
  - HYPERLIPIDAEMIA [None]
  - LABILE HYPERTENSION [None]
  - LACUNAR INFARCTION [None]
  - LUMBAR RADICULOPATHY [None]
  - MENISCUS LESION [None]
  - NAUSEA [None]
  - PERIPHERAL VASCULAR DISORDER [None]
  - SINUSITIS [None]
  - SLEEP DISORDER [None]
  - SPONDYLOLISTHESIS [None]
  - SPONDYLOLYSIS [None]
